FAERS Safety Report 5829503-X (Version None)
Quarter: 2008Q3

REPORT INFORMATION
  Report Type: 
  Country: None (occurrence: None)
  Receive Date: 20080731
  Receipt Date: 20080721
  Transmission Date: 20090109
  Serious: Yes (Other)
  Sender: FDA-Public Use
  Company Number: US-PFIZER INC-2008060791

PATIENT
  Sex: Male
  Weight: 81 kg

DRUGS (4)
  1. CELEBREX [Suspect]
     Indication: ARTHRITIS
     Route: 048
     Dates: start: 20060101, end: 20080301
  2. CELEBREX [Suspect]
     Indication: ARTHRALGIA
  3. CELEBREX [Suspect]
     Indication: ARTHROPATHY
  4. DRUG, UNSPECIFIED [Concomitant]

REACTIONS (2)
  - RENAL IMPAIRMENT [None]
  - VASCULAR GRAFT [None]
